FAERS Safety Report 25225462 (Version 1)
Quarter: 2025Q2

REPORT INFORMATION
  Report Type: Other
  Country: US (occurrence: US)
  Receive Date: 20250422
  Receipt Date: 20250422
  Transmission Date: 20250716
  Serious: Yes (Hospitalization, Other)
  Sender: APPCO PHARMA LLC
  Company Number: US-Appco Pharma LLC-2175351

PATIENT
  Age: 34 Year
  Sex: Female

DRUGS (3)
  1. METRONIDAZOLE [Suspect]
     Active Substance: METRONIDAZOLE
     Indication: Trichomoniasis
  2. FLUCONAZOLE [Suspect]
     Active Substance: FLUCONAZOLE
  3. SULFAMETHOXAZOLE AND TRIMETHOPRIM [Suspect]
     Active Substance: SULFAMETHOXAZOLE\TRIMETHOPRIM

REACTIONS (3)
  - Drug reaction with eosinophilia and systemic symptoms [Unknown]
  - Cardiogenic shock [Unknown]
  - Myopericarditis [Recovered/Resolved]
